FAERS Safety Report 21628667 (Version 1)
Quarter: 2022Q4

REPORT INFORMATION
  Report Type: Spontaneous
  Country: US (occurrence: None)
  Receive Date: 20221121
  Receipt Date: 20221121
  Transmission Date: 20230112
  Serious: No
  Sender: FDA-Public Use
  Company Number: None

PATIENT
  Sex: 0

DRUGS (1)
  1. VILAZODONE [Suspect]
     Active Substance: VILAZODONE

REACTIONS (3)
  - Dizziness [None]
  - Nausea [None]
  - Vomiting [None]
